FAERS Safety Report 9258859 (Version 1)
Quarter: 2013Q2

REPORT INFORMATION
  Report Type: Spontaneous
  Country: US (occurrence: US)
  Receive Date: 20130426
  Receipt Date: 20130426
  Transmission Date: 20140414
  Serious: No
  Sender: FDA-Public Use
  Company Number: US-GLAXOSMITHKLINE-A0970525A

PATIENT
  Age: 47 Year
  Sex: Female

DRUGS (7)
  1. AMERGE [Suspect]
     Indication: MIGRAINE
     Dosage: 1TAB AS REQUIRED
     Route: 048
     Dates: start: 20120227
  2. DEPAKOTE ER [Concomitant]
  3. TOPAMAX [Concomitant]
  4. SYNTHROID [Concomitant]
  5. KLONOPIN [Concomitant]
  6. ZOFRAN [Concomitant]
  7. FIORICET [Concomitant]

REACTIONS (3)
  - Sedation [Unknown]
  - Hypoaesthesia [Unknown]
  - Hypoacusis [Unknown]
